FAERS Safety Report 6257319-1 (Version None)
Quarter: 2009Q3

REPORT INFORMATION
  Report Type: 
  Country: None (occurrence: None)
  Receive Date: 20090701
  Receipt Date: 20090701
  Transmission Date: 20100115
  Serious: Yes (Life-Threatening)
  Sender: FDA-Public Use
  Company Number: None

PATIENT
  Sex: Female
  Weight: 117.9352 kg

DRUGS (2)
  1. CLINDAMYCIN 150MG CERNER MULTUM, INC [Suspect]
     Indication: ANIMAL BITE
     Dosage: 2 TABLETS 4 TIMES A DAY PO
     Route: 048
     Dates: start: 20090617, end: 20090628
  2. CLINDAMYCIN 150MG CERNER MULTUM, INC [Suspect]
     Indication: COLITIS
     Dosage: 2 TABLETS 4 TIMES A DAY PO
     Route: 048
     Dates: start: 20090617, end: 20090628

REACTIONS (6)
  - DRUG HYPERSENSITIVITY [None]
  - DRUG INEFFECTIVE [None]
  - ERYTHEMA [None]
  - PRURITUS [None]
  - SKIN DISORDER [None]
  - SKIN HAEMORRHAGE [None]
